FAERS Safety Report 4821043-X (Version None)
Quarter: 2005Q4

REPORT INFORMATION
  Report Type: 
  Country: None (occurrence: None)
  Receive Date: 20051104
  Receipt Date: 20050926
  Transmission Date: 20060501
  Serious: Yes (Hospitalization)
  Sender: FDA-Public Use
  Company Number: HQWYE641826SEP05

PATIENT
  Sex: Female

DRUGS (7)
  1. ENBREL [Suspect]
     Route: 058
     Dates: start: 20050922, end: 20050922
  2. PREDONINE [Concomitant]
     Route: 065
     Dates: start: 19970101, end: 20050922
  3. BROTIZOLAM [Concomitant]
     Route: 065
     Dates: start: 20000101, end: 20050922
  4. ALFAROL [Concomitant]
     Route: 065
     Dates: start: 19980101, end: 20050922
  5. AMARYL [Concomitant]
     Route: 065
     Dates: start: 20030101, end: 20050922
  6. RISEDRONIC ACID [Concomitant]
     Route: 065
     Dates: start: 20040101, end: 20050922
  7. BASEN [Concomitant]
     Route: 065
     Dates: start: 20020101, end: 20050922

REACTIONS (12)
  - ARTHRALGIA [None]
  - ASTHENIA [None]
  - BLOOD PRESSURE DECREASED [None]
  - CARDIAC ARREST [None]
  - DEPRESSED LEVEL OF CONSCIOUSNESS [None]
  - FATIGUE [None]
  - HYPOKALAEMIA [None]
  - HYPONATRAEMIA [None]
  - LUNG INFECTION PSEUDOMONAL [None]
  - NAUSEA [None]
  - URINARY INCONTINENCE [None]
  - VENTRICULAR FLUTTER [None]
